FAERS Safety Report 5932359-8 (Version None)
Quarter: 2008Q4

REPORT INFORMATION
  Report Type: 
  Country: None (occurrence: None)
  Receive Date: 20081027
  Receipt Date: 20081027
  Transmission Date: 20090506
  Serious: Yes (Other)
  Sender: FDA-Public Use
  Company Number: None

PATIENT
  Age: 53 Year
  Sex: Female
  Weight: 61.2356 kg

DRUGS (2)
  1. PAXIL [Suspect]
     Indication: ANXIETY
     Dosage: 25MG DAILY
     Dates: start: 19990901, end: 20081026
  2. PAROXETINE HCL [Concomitant]

REACTIONS (7)
  - AMNESIA [None]
  - APATHY [None]
  - DISTURBANCE IN ATTENTION [None]
  - DIZZINESS [None]
  - SEDATION [None]
  - SOMNOLENCE [None]
  - SUICIDAL IDEATION [None]
